FAERS Safety Report 8325754-3 (Version None)
Quarter: 2012Q2

REPORT INFORMATION
  Report Type: 
  Country: None (occurrence: None)
  Receive Date: 20120501
  Receipt Date: 20120419
  Transmission Date: 20120825
  Serious: No
  Sender: FDA-Public Use
  Company Number: US-BIOGENIDEC-2011BI025722

PATIENT
  Age: 34 Year
  Sex: Female

DRUGS (2)
  1. TYSABRI [Suspect]
     Indication: MULTIPLE SCLEROSIS
     Route: 042
     Dates: start: 20090323, end: 20091103
  2. TYSABRI [Suspect]
     Route: 042
     Dates: start: 20100302, end: 20120131

REACTIONS (6)
  - DRUG INEFFECTIVE [None]
  - NEPHROLITHIASIS [None]
  - MEMORY IMPAIRMENT [None]
  - PAIN [None]
  - SWELLING [None]
  - URINARY TRACT INFECTION [None]
